FAERS Safety Report 12712385 (Version 2)
Quarter: 2016Q4

REPORT INFORMATION
  Report Type: Spontaneous
  Country: US (occurrence: US)
  Receive Date: 20160902
  Receipt Date: 20161209
  Transmission Date: 20170207
  Serious: Yes (Hospitalization, Disabling, Other)
  Sender: FDA-Public Use
  Company Number: US-PFIZER INC-2016414771

PATIENT
  Age: 59 Year
  Sex: Male

DRUGS (3)
  1. TESTOSTERONE. [Suspect]
     Active Substance: TESTOSTERONE
     Indication: HORMONE REPLACEMENT THERAPY
     Dosage: UNK, DAILY
     Dates: start: 1997
  2. DEPO-TESTOSTERONE [Suspect]
     Active Substance: TESTOSTERONE CYPIONATE
     Indication: HORMONE REPLACEMENT THERAPY
     Dosage: UNK
     Dates: start: 20100816, end: 20140323
  3. ANDROGEL [Suspect]
     Active Substance: TESTOSTERONE
     Indication: HORMONE REPLACEMENT THERAPY
     Dosage: UNK, DAILY
     Dates: start: 1998, end: 201109

REACTIONS (7)
  - Gait disturbance [Not Recovered/Not Resolved]
  - Deep vein thrombosis [Unknown]
  - Walking aid user [Not Recovered/Not Resolved]
  - Pelvic mass [Unknown]
  - Pain in extremity [Not Recovered/Not Resolved]
  - Cardiovascular disorder [Unknown]
  - Vascular compression [Unknown]

NARRATIVE: CASE EVENT DATE: 20111020
